FAERS Safety Report 4974890-8 (Version None)
Quarter: 2006Q1

REPORT INFORMATION
  Report Type: 
  Country: None (occurrence: None)
  Receive Date: 20060227
  Receipt Date: 20051130
  Transmission Date: 20060701
  Serious: No
  Sender: FDA-Public Use
  Company Number: PHEH2005US13046

PATIENT
  Age: 64 Year
  Sex: Female

DRUGS (8)
  1. ENABLEX [Suspect]
     Indication: URINARY INCONTINENCE
     Dosage: 15 MG;Q D
     Dates: start: 20051129
  2. PREMARIN [Concomitant]
  3. DIOVAN [Concomitant]
  4. CELEBREX [Concomitant]
  5. DARVOCET-N 100 [Concomitant]
  6. SOMA [Concomitant]
  7. VITAMINS [Concomitant]
  8. WELLBUTRIN [Concomitant]

REACTIONS (2)
  - ABDOMINAL PAIN UPPER [None]
  - CYSTOSCOPY [None]
